FAERS Safety Report 7544245-0 (Version None)
Quarter: 2011Q2

REPORT INFORMATION
  Report Type: 
  Country: None (occurrence: None)
  Receive Date: 20110613
  Receipt Date: 20070604
  Transmission Date: 20111010
  Serious: Yes (Death)
  Sender: FDA-Public Use
  Company Number: PHHO2006KR07618

PATIENT
  Sex: Female

DRUGS (4)
  1. TRILEPTAL [Suspect]
     Dosage: 600 MG, UNK
     Route: 048
     Dates: start: 20040219, end: 20040226
  2. TRILEPTAL [Suspect]
     Dosage: 1200 MG, UNK
     Route: 048
     Dates: start: 20040327
  3. TRILEPTAL [Suspect]
     Dosage: 300 MG, UNK
     Route: 048
     Dates: start: 20040218, end: 20040218
  4. TRILEPTAL [Suspect]
     Indication: CONVULSION
     Dosage: 150 MG, UNK
     Route: 048
     Dates: start: 20040217

REACTIONS (1)
  - DEATH [None]
